FAERS Safety Report 21184883 (Version 1)
Quarter: 2022Q3

REPORT INFORMATION
  Report Type: Spontaneous
  Country: US (occurrence: US)
  Receive Date: 20220808
  Receipt Date: 20220808
  Transmission Date: 20221026
  Serious: Yes (Other)
  Sender: FDA-Public Use
  Company Number: US-FreseniusKabi-FK202210790

PATIENT
  Age: 77 Year
  Sex: Male

DRUGS (3)
  1. DEXMEDETOMIDINE [Suspect]
     Active Substance: DEXMEDETOMIDINE
     Indication: Delirium
     Dosage: DOSE OF 1.5 MCG/KG/HR?DOSE WAS TAPERED TO 0.5 MCG/KG/HR
  2. LORAZEPAM [Concomitant]
     Active Substance: LORAZEPAM
     Indication: Delirium
  3. HALOPERIDOL [Concomitant]
     Active Substance: HALOPERIDOL
     Indication: Delirium

REACTIONS (1)
  - Central sleep apnoea syndrome [Recovered/Resolved]
